FAERS Safety Report 11427374 (Version 2)
Quarter: 2016Q3

REPORT INFORMATION
  Report Type: Spontaneous
  Country: US (occurrence: US)
  Receive Date: 20150827
  Receipt Date: 20160830
  Transmission Date: 20161109
  Serious: No
  Sender: FDA-Public Use
  Company Number: US-SA-2015SA087397

PATIENT
  Age: 19 Year
  Sex: Female
  Weight: 104.5 kg

DRUGS (13)
  1. FABRAZYME [Suspect]
     Active Substance: AGALSIDASE BETA
     Indication: FABRY^S DISEASE
     Route: 041
     Dates: start: 20131023
  2. NORMAL SALINE [Concomitant]
     Active Substance: SODIUM CHLORIDE
     Indication: MEDICATION DILUTION
     Dosage: 0.9% AS DIRECTED
     Route: 042
     Dates: start: 20131023
  3. LIDOCAINE/PRILOCAINE [Concomitant]
     Dosage: 2.5% AS DIRECTED
     Dates: start: 20131023
  4. ACETAMINOPHEN. [Concomitant]
     Active Substance: ACETAMINOPHEN
     Route: 048
     Dates: start: 20131023
  5. PROVENTIL [Concomitant]
     Active Substance: ALBUTEROL
     Dosage: INHALANT DOSE:1 PUFF(S)
     Dates: start: 20140319
  6. EPIPEN [Concomitant]
     Active Substance: EPINEPHRINE
     Indication: ANAPHYLACTIC REACTION
     Route: 042
     Dates: start: 20131023
  7. BUPROPION. [Concomitant]
     Active Substance: BUPROPION
     Dosage: 1 TABLET 2 TIMES A DAY BY MOUTH
     Route: 048
     Dates: start: 20140319
  8. MELOXICAM. [Concomitant]
     Active Substance: MELOXICAM
     Dosage: 1 TABLET BY MOUTH DAILY
     Route: 048
     Dates: start: 20140319
  9. DIPHENHYDRAMINE. [Concomitant]
     Active Substance: DIPHENHYDRAMINE
     Indication: ANAPHYLACTIC REACTION
     Route: 048
     Dates: start: 20131023
  10. CATHFLO ACTIVASE [Concomitant]
     Active Substance: ALTEPLASE
     Dosage: 2 MG AS DIRECTED
     Route: 042
     Dates: start: 20131023
  11. CEFDINIR. [Concomitant]
     Active Substance: CEFDINIR
     Route: 048
     Dates: start: 20150601
  12. AMITRIPTYLINE HYDROCHLORIDE. [Concomitant]
     Active Substance: AMITRIPTYLINE HYDROCHLORIDE
     Route: 048
     Dates: start: 20140902
  13. FABRAZYME [Suspect]
     Active Substance: AGALSIDASE BETA
     Indication: LIPIDOSIS
     Route: 041
     Dates: start: 20131023

REACTIONS (1)
  - Urinary tract infection [Recovered/Resolved]
